FAERS Safety Report 9839016 (Version 1)
Quarter: 2014Q1

REPORT INFORMATION
  Report Type: Spontaneous
  Country: GB (occurrence: GB)
  Receive Date: 20140123
  Receipt Date: 20140123
  Transmission Date: 20141002
  Serious: Yes (Disabling)
  Sender: FDA-Public Use
  Company Number: GB-TEVA-455436ISR

PATIENT
  Age: 76 Year
  Sex: Female

DRUGS (6)
  1. NITROFURANTOIN [Suspect]
     Indication: PROPHYLAXIS URINARY TRACT INFECTION
     Dosage: 50 MILLIGRAM DAILY;
     Route: 048
     Dates: start: 20130205, end: 20131128
  2. LOPERAMIDE [Concomitant]
  3. LANSOPRAZOLE [Concomitant]
  4. ASPIRIN [Concomitant]
  5. DIGOXIN [Concomitant]
  6. CODEINE PHOSPHATE [Concomitant]

REACTIONS (8)
  - Neuropathy peripheral [Unknown]
  - Burning sensation [Unknown]
  - Paraesthesia [Unknown]
  - Pain [Unknown]
  - Local swelling [Unknown]
  - Rash erythematous [Unknown]
  - Hypoaesthesia [Unknown]
  - Toxicity to various agents [Unknown]
